FAERS Safety Report 7063380-7 (Version None)
Quarter: 2010Q4

REPORT INFORMATION
  Report Type: 
  Country: None (occurrence: None)
  Receive Date: 20101026
  Receipt Date: 20100722
  Transmission Date: 20110411
  Serious: No
  Sender: FDA-Public Use
  Company Number: US-PFIZER INC-2010092805

PATIENT
  Sex: Male
  Weight: 95.238 kg

DRUGS (3)
  1. LIPITOR [Suspect]
     Indication: BLOOD CHOLESTEROL INCREASED
     Dosage: 10 MG, DAILY
     Dates: start: 20010101
  2. LIPITOR [Suspect]
     Indication: CORONARY ARTERY DISEASE
  3. NEXIUM [Concomitant]
     Dosage: UNK

REACTIONS (1)
  - HIGH DENSITY LIPOPROTEIN DECREASED [None]
